FAERS Safety Report 14169944 (Version 2)
Quarter: 2017Q4

REPORT INFORMATION
  Report Type: Spontaneous
  Country: ES (occurrence: ES)
  Receive Date: 20171108
  Receipt Date: 20171207
  Transmission Date: 20180321
  Serious: Yes (Other)
  Sender: FDA-Public Use
  Company Number: ES-TOLMAR, INC.-2017ES015199

PATIENT
  Age: 80 Year
  Sex: Male

DRUGS (8)
  1. ELIGARD [Suspect]
     Active Substance: LEUPROLIDE ACETATE
     Indication: PROSTATE CANCER
     Dosage: BIANNUALLY
     Route: 065
     Dates: start: 20110712
  2. BICALUTAMIDE. [Concomitant]
     Active Substance: BICALUTAMIDE
     Dosage: UNK
     Dates: start: 20110712
  3. MICARDIS [Concomitant]
     Active Substance: TELMISARTAN
  4. TERTENSIF [Concomitant]
     Active Substance: INDAPAMIDE
  5. DENOSUMAB [Concomitant]
     Active Substance: DENOSUMAB
  6. PALEXIA [Concomitant]
     Active Substance: TAPENTADOL HYDROCHLORIDE
  7. ENZALUTAMIDE [Suspect]
     Active Substance: ENZALUTAMIDE
     Indication: PRODUCT USED FOR UNKNOWN INDICATION
     Dosage: UNK
     Route: 065
     Dates: start: 20170215
  8. ABIRATERONE [Concomitant]
     Active Substance: ABIRATERONE

REACTIONS (10)
  - Rib fracture [Unknown]
  - Retroperitoneal lymphadenopathy [Unknown]
  - Disease progression [Unknown]
  - Prostatic specific antigen increased [Unknown]
  - Metastases to bone [Unknown]
  - Radiation injury [Unknown]
  - Fracture [Unknown]
  - Injury [Unknown]
  - Prostatic specific antigen increased [Unknown]
  - Prostatic specific antigen increased [Unknown]

NARRATIVE: CASE EVENT DATE: 201311
